FAERS Safety Report 5677072-X (Version None)
Quarter: 2008Q1

REPORT INFORMATION
  Report Type: 
  Country: None (occurrence: None)
  Receive Date: 20080324
  Receipt Date: 20080310
  Transmission Date: 20080703
  Serious: Yes (Hospitalization)
  Sender: FDA-Public Use
  Company Number: US-ELI_LILLY_AND_COMPANY-US200803002491

PATIENT
  Age: 14 Year
  Sex: Female

DRUGS (2)
  1. OLANZAPINE [Suspect]
     Indication: BIPOLAR DISORDER
     Dosage: 15 MG, DAILY (1/D)
  2. OLANZAPINE [Suspect]
     Dosage: 17.5 MG, DAILY (1/D)

REACTIONS (4)
  - HYPERTHERMIA [None]
  - RHABDOMYOLYSIS [None]
  - SHOCK [None]
  - WEIGHT INCREASED [None]
